FAERS Safety Report 26102782 (Version 2)
Quarter: 2025Q4

REPORT INFORMATION
  Report Type: Spontaneous
  Country: VE (occurrence: VE)
  Receive Date: 20251128
  Receipt Date: 20251229
  Transmission Date: 20260117
  Serious: Yes (Hospitalization)
  Sender: PFIZER
  Company Number: VE-PFIZER INC-PV202500139218

PATIENT
  Age: 53 Year
  Sex: Female

DRUGS (2)
  1. BOSULIF [Suspect]
     Active Substance: BOSUTINIB MONOHYDRATE
     Indication: Chronic myeloid leukaemia
     Dosage: 300 MG (3 X 100MG TABLETS)
  2. BOSULIF [Suspect]
     Active Substance: BOSUTINIB MONOHYDRATE
     Dosage: 100 MG, DAILY

REACTIONS (5)
  - Lung infiltration [Unknown]
  - Cardiac disorder [Unknown]
  - Pleural effusion [Unknown]
  - Renal disorder [Unknown]
  - Decreased immune responsiveness [Unknown]
